FAERS Safety Report 11050689 (Version 2)
Quarter: 2015Q2

REPORT INFORMATION
  Report Type: Report from Study
  Country: BE (occurrence: BE)
  Receive Date: 20150421
  Receipt Date: 20150518
  Transmission Date: 20150821
  Serious: Yes (Hospitalization, Other)
  Sender: FDA-Public Use
  Company Number: BE-BIOGENIDEC-2015BI048713

PATIENT
  Age: 42 Year
  Sex: Female

DRUGS (14)
  1. D-CURE [Concomitant]
     Indication: VITAMIN D DEFICIENCY
     Dates: start: 20090916
  2. OMEPRAZOL [Concomitant]
     Active Substance: OMEPRAZOLE
     Indication: PROPHYLAXIS
     Dates: start: 20091211
  3. SEVIKAR [Concomitant]
     Active Substance: AMLODIPINE BESYLATE\OLMESARTAN MEDOXOMIL
     Indication: HYPERTENSION
     Dates: start: 20110311
  4. FUROSEMIDE. [Concomitant]
     Active Substance: FUROSEMIDE
     Indication: DIURETIC THERAPY
     Dates: start: 20100427
  5. MOXONIDINE [Concomitant]
     Active Substance: MOXONIDINE
     Indication: HYPERTENSION
     Dates: start: 20101119
  6. ZOCOR [Concomitant]
     Active Substance: SIMVASTATIN
     Indication: HYPERCHOLESTEROLAEMIA
     Dates: start: 20090813
  7. REDOMEX [Concomitant]
     Indication: HEADACHE
     Dates: start: 20100311
  8. TERAZOSINE [Concomitant]
     Indication: HYPERTENSION
     Dates: start: 20090916
  9. PALLADONE [Concomitant]
     Active Substance: HYDROMORPHONE HYDROCHLORIDE
     Indication: PAIN
     Dates: start: 20100427
  10. TYSABRI [Suspect]
     Active Substance: NATALIZUMAB
     Indication: RELAPSING-REMITTING MULTIPLE SCLEROSIS
     Route: 042
     Dates: start: 20100507
  11. ASAFLOW [Concomitant]
     Active Substance: ASPIRIN
     Indication: HYPERTENSION
     Dates: start: 20100924
  12. LORMETAZEPAM [Concomitant]
     Active Substance: LORMETAZEPAM
     Indication: SLEEP DISORDER
     Dates: start: 20100427
  13. FLUOXONE [Concomitant]
     Indication: DEPRESSION
     Dates: start: 20141017
  14. ALPRAZOL [Concomitant]
     Indication: MENTAL DISORDER
     Dates: start: 20140627

REACTIONS (1)
  - Post procedural fistula [Recovered/Resolved]

NARRATIVE: CASE EVENT DATE: 20150130
